FAERS Safety Report 4915626-6 (Version None)
Quarter: 2006Q1

REPORT INFORMATION
  Report Type: 
  Country: None (occurrence: None)
  Receive Date: 20060217
  Receipt Date: 20051017
  Transmission Date: 20060701
  Serious: Yes (Death, Hospitalization)
  Sender: FDA-Public Use
  Company Number: US-MERCK-0510USA07784

PATIENT
  Age: 82 Year
  Sex: Male

DRUGS (4)
  1. VIOXX [Suspect]
     Route: 048
     Dates: start: 20031013, end: 20040301
  2. ASPIRIN [Concomitant]
     Route: 065
  3. COUMADIN [Concomitant]
     Route: 065
  4. TENORMIN [Concomitant]
     Route: 065

REACTIONS (12)
  - AORTIC VALVE INCOMPETENCE [None]
  - ARTERIOSCLEROSIS [None]
  - ATRIAL FIBRILLATION [None]
  - BUNDLE BRANCH BLOCK RIGHT [None]
  - CEREBRAL INFARCTION [None]
  - DILATATION ATRIAL [None]
  - EMBOLISM [None]
  - HYPERTENSION [None]
  - MITRAL VALVE INCOMPETENCE [None]
  - TRANSIENT ISCHAEMIC ATTACK [None]
  - URINARY TRACT INFECTION [None]
  - VENTRICULAR HYPERTROPHY [None]
